FAERS Safety Report 13526795 (Version 1)
Quarter: 2017Q2

REPORT INFORMATION
  Report Type: Report from Study
  Country: US (occurrence: US)
  Receive Date: 20170509
  Receipt Date: 20170509
  Transmission Date: 20170830
  Serious: No
  Sender: FDA-Public Use
  Company Number: US-BIOVITRUM-2016US0113

PATIENT
  Sex: Female

DRUGS (1)
  1. ORFADIN [Suspect]
     Active Substance: NITISINONE
     Indication: AMINO ACID METABOLISM DISORDER
     Route: 048
     Dates: start: 20151219, end: 20160121

REACTIONS (3)
  - Abdominal pain upper [Unknown]
  - Haemorrhage [Unknown]
  - Hepatomegaly [Unknown]
